FAERS Safety Report 8275855-3 (Version None)
Quarter: 2012Q2

REPORT INFORMATION
  Report Type: 
  Country: None (occurrence: None)
  Receive Date: 20120410
  Receipt Date: 20120410
  Transmission Date: 20120825
  Serious: No
  Sender: FDA-Public Use
  Company Number: None

PATIENT
  Age: 85 Year
  Sex: Male
  Weight: 71.4 kg

DRUGS (1)
  1. MELOXICAM [Suspect]
     Indication: PAIN
     Dosage: 15 MG EVERY DAY PO
     Route: 048
     Dates: start: 20060113, end: 20111209

REACTIONS (2)
  - GASTRITIS [None]
  - IRON DEFICIENCY [None]
